FAERS Safety Report 6660537-1 (Version None)
Quarter: 2010Q1

REPORT INFORMATION
  Report Type: 
  Country: None (occurrence: None)
  Receive Date: 20100331
  Receipt Date: 20100326
  Transmission Date: 20100710
  Serious: Yes (Death, Hospitalization, Other)
  Sender: FDA-Public Use
  Company Number: PHHY2010US05412

PATIENT
  Sex: Male

DRUGS (9)
  1. GLEEVEC [Suspect]
     Indication: CHRONIC MYELOID LEUKAEMIA
     Dosage: 400 MG DAILY
     Route: 048
     Dates: start: 20090423, end: 20100126
  2. GALANTAMINE HYDROBROMIDE [Concomitant]
     Dosage: 12 MG, BID
     Route: 048
  3. TYLENOL-500 [Concomitant]
     Indication: PAIN
     Dosage: 650 MG, Q4H PRN
     Route: 048
  4. TYLENOL-500 [Concomitant]
     Indication: PYREXIA
  5. SEROQUEL [Concomitant]
     Dosage: 50 MG, QD
     Route: 048
  6. TRAZODONE [Concomitant]
     Dosage: 25 MG, QD
     Route: 048
  7. TEMAZEPAM [Concomitant]
     Dosage: 15 MG, QD
     Route: 048
  8. NAMENDA [Concomitant]
     Dosage: 10 MG, BID
     Route: 048
  9. ALLOPURINOL [Concomitant]
     Dosage: 300 MG, QD
     Route: 048

REACTIONS (18)
  - AGITATION [None]
  - BACTERIAL TEST [None]
  - BLOOD CHLORIDE INCREASED [None]
  - BLOOD SODIUM INCREASED [None]
  - CELLULITIS [None]
  - CONFUSIONAL STATE [None]
  - DEATH [None]
  - DYSPHAGIA [None]
  - HYPOPHAGIA [None]
  - LACK OF SPONTANEOUS SPEECH [None]
  - MUSCULOSKELETAL PAIN [None]
  - PERIRECTAL ABSCESS [None]
  - PYREXIA [None]
  - SEPSIS [None]
  - SINUS TACHYCARDIA [None]
  - SKIN ULCER [None]
  - SUBCUTANEOUS ABSCESS [None]
  - URINE ABNORMALITY [None]
